FAERS Safety Report 8881917 (Version 1)
Quarter: 2012Q4

REPORT INFORMATION
  Report Type: 
  Country: US (occurrence: US)
  Receive Date: 20121101
  Receipt Date: 20121101
  Transmission Date: 20130627
  Serious: No
  Sender: FDA-Public Use
  Company Number: US-PFIZER INC-2012269601

PATIENT
  Sex: Female

DRUGS (2)
  1. ADVIL [Suspect]
     Dosage: UNK
     Dates: end: 20121027
  2. ADVIL [Suspect]
     Dosage: three ADVIL at once
     Dates: start: 20121027

REACTIONS (2)
  - Incorrect dose administered [Unknown]
  - Dizziness [Unknown]
